FAERS Safety Report 20923067 (Version 1)
Quarter: 2022Q2

REPORT INFORMATION
  Report Type: Spontaneous
  Country: GR (occurrence: GR)
  Receive Date: 20220607
  Receipt Date: 20220607
  Transmission Date: 20220721
  Serious: Yes (Other)
  Sender: FDA-Public Use
  Company Number: GR-BRISTOL-MYERS SQUIBB COMPANY-2022-049899

PATIENT
  Sex: Female

DRUGS (3)
  1. REBLOZYL [Suspect]
     Active Substance: LUSPATERCEPT-AAMT
     Indication: Product used for unknown indication
     Dosage: DOSE : UNAVAILABLE;     FREQ : UNAVAILABLE
  2. REBLOZYL [Suspect]
     Active Substance: LUSPATERCEPT-AAMT
     Dosage: DOSE : UNAVIALABLE;     FREQ : UNAVIALABLE
  3. LUSPATERCEPT [Suspect]
     Active Substance: LUSPATERCEPT
     Indication: Product used for unknown indication
     Dosage: DOSE : UNAVAILABLE;     FREQ : UNAVAILABLE

REACTIONS (5)
  - Extramedullary haemopoiesis [Unknown]
  - Thrombosis [Unknown]
  - Deep vein thrombosis [Unknown]
  - Pain [Unknown]
  - Nerve injury [Unknown]
